FAERS Safety Report 17726311 (Version 1)
Quarter: 2020Q2

REPORT INFORMATION
  Report Type: Spontaneous
  Country: AU (occurrence: AU)
  Receive Date: 20200429
  Receipt Date: 20200429
  Transmission Date: 20200714
  Serious: Yes (Other)
  Sender: FDA-Public Use
  Company Number: AU-SUN PHARMACEUTICAL INDUSTRIES LTD-2020RR-245475

PATIENT
  Age: 6 Year
  Sex: Female

DRUGS (4)
  1. SIMVASTATIN/EZETIMIBE [Suspect]
     Active Substance: SIMVASTATIN
     Indication: ALOPECIA UNIVERSALIS
     Dosage: UNK
     Route: 065
  2. SIMVASTATIN. [Suspect]
     Active Substance: SIMVASTATIN
     Indication: ALOPECIA UNIVERSALIS
     Dosage: 20 MILLIGRAM, DAILY
     Route: 065
  3. MINOXIDIL. [Suspect]
     Active Substance: MINOXIDIL
     Indication: ALOPECIA UNIVERSALIS
     Dosage: 0.5 MILLIGRAM, DAILY
     Route: 065
  4. MINOXIDIL. [Suspect]
     Active Substance: MINOXIDIL
     Dosage: 1 MILLIGRAM
     Route: 065

REACTIONS (3)
  - Alopecia universalis [Recovered/Resolved]
  - Hepatic enzyme abnormal [Recovering/Resolving]
  - Condition aggravated [Unknown]
